FAERS Safety Report 5159953-9 (Version None)
Quarter: 2006Q4

REPORT INFORMATION
  Report Type: 
  Country: None (occurrence: None)
  Receive Date: 20061117
  Receipt Date: 20061108
  Transmission Date: 20070319
  Serious: Yes (Hospitalization)
  Sender: FDA-Public Use
  Company Number: 231779K06USA

PATIENT
  Age: 46 Year
  Sex: Female

DRUGS (5)
  1. REBIF [Suspect]
     Indication: MULTIPLE SCLEROSIS
     Dosage: 22 MCG, 3 IN 1 WEEKS, SUBCUTANEOUS
     Route: 058
     Dates: start: 20050808, end: 20060112
  2. NAPROSYN [Suspect]
  3. NEXIUM [Concomitant]
  4. CYMBALTA [Concomitant]
  5. VICODIN [Concomitant]

REACTIONS (4)
  - DEPRESSION [None]
  - HAEMORRHAGE [None]
  - MICROCYTIC ANAEMIA [None]
  - SUICIDAL IDEATION [None]
